FAERS Safety Report 6842052-5 (Version None)
Quarter: 2010Q3

REPORT INFORMATION
  Report Type: 
  Country: None (occurrence: None)
  Receive Date: 20100714
  Receipt Date: 20070718
  Transmission Date: 20110219
  Serious: No
  Sender: FDA-Public Use
  Company Number: US-PFIZER INC-2007060951

PATIENT
  Sex: Female
  Weight: 83.9 kg

DRUGS (10)
  1. CHANTIX [Suspect]
     Indication: SMOKING CESSATION THERAPY
     Route: 048
     Dates: start: 20070501
  2. METFORMIN HCL [Concomitant]
     Indication: BLOOD CHOLESTEROL INCREASED
  3. ZOCOR [Concomitant]
     Indication: BLOOD CHOLESTEROL INCREASED
  4. LEXAPRO [Concomitant]
  5. LASIX [Concomitant]
  6. SEROQUEL [Concomitant]
  7. VALIUM [Concomitant]
  8. WELLBUTRIN [Concomitant]
  9. SITAGLIPTIN [Concomitant]
  10. ADDERALL 10 [Concomitant]

REACTIONS (1)
  - HEPATIC ENZYME INCREASED [None]
